FAERS Safety Report 7684910-8 (Version None)
Quarter: 2011Q3

REPORT INFORMATION
  Report Type: 
  Country: None (occurrence: None)
  Receive Date: 20110810
  Receipt Date: 20110801
  Transmission Date: 20111222
  Serious: Yes (Other)
  Sender: FDA-Public Use
  Company Number: US-2011-1162

PATIENT
  Age: 65 Year
  Sex: Female
  Weight: 72.3 kg

DRUGS (10)
  1. TYROSINE KINASE INHIBITOR (NERATINIB) [Suspect]
     Indication: BREAST CANCER METASTATIC
     Dosage: 120 MG QD PO
     Route: 048
     Dates: start: 20091007, end: 20101130
  2. VITAMIN D [Concomitant]
  3. VINORELBINE [Suspect]
     Indication: BREAST CANCER METASTATIC
     Dates: start: 20091007
  4. PREDNISOLONE [Concomitant]
  5. PEPCID [Concomitant]
  6. LEVOTHYROXINE SODIUM [Concomitant]
  7. HYDROCODONE [Concomitant]
  8. DURAGESIC-100 [Concomitant]
  9. GLYBURIDE [Concomitant]
  10. NEURONTIN [Concomitant]

REACTIONS (5)
  - CARDIAC MYXOMA [None]
  - TREATMENT NONCOMPLIANCE [None]
  - NEOPLASM PROGRESSION [None]
  - METASTASES TO CENTRAL NERVOUS SYSTEM [None]
  - METASTASES TO BONE [None]
